FAERS Safety Report 19828088 (Version 1)
Quarter: 2021Q3

REPORT INFORMATION
  Report Type: Spontaneous
  Country: DE (occurrence: DE)
  Receive Date: 20210914
  Receipt Date: 20210914
  Transmission Date: 20211014
  Serious: Yes (Hospitalization)
  Sender: FDA-Public Use
  Company Number: DE-TEVA-2021-DE-1951518

PATIENT
  Age: 84 Year
  Sex: Male

DRUGS (14)
  1. MOMETASON [Concomitant]
     Active Substance: MOMETASONE FUROATE
     Dosage: .1 MICROGRAM DAILY; 0.05 UG, 1?0?1?0
  2. SALBUTAMOL [Concomitant]
     Active Substance: ALBUTEROL
     Dosage: IF NECESSARY, METERED DOSE INHALER
     Route: 055
  3. STALEVO 150MG/37,5MG/200MG [Concomitant]
     Dosage: 150 MILLIGRAM DAILY;  0?0?1?0
     Route: 048
  4. XIPAMID [Suspect]
     Active Substance: XIPAMIDE
     Dosage: 10 MILLIGRAM DAILY; 1?0?0?0
     Route: 048
  5. FLUTICASONFUROAT/VILANTEROL [Concomitant]
     Dosage: 1 DOSAGE FORMS DAILY; 100|25 UG, 1?0?0?0, METERED DOSE AEROSOL
     Route: 055
  6. STALEVO 150MG/37,5MG/200MG [Concomitant]
     Dosage: 175 MILLIGRAM DAILY;  0?1?0?0; STALEVO 175MG/43,75MG/200MG
     Route: 048
  7. TIOTROPIUMBROMID [Concomitant]
     Dosage: 2 DOSAGE FORMS DAILY; 2.5 UG, 2?0?0?0, METERED DOSE AEROSOL
     Route: 055
  8. RIVAROXABAN [Suspect]
     Active Substance: RIVAROXABAN
     Dosage: 20 MILLIGRAM DAILY; 1?0?0?0
     Route: 048
  9. FLUTICASON [Concomitant]
     Active Substance: FLUTICASONE
     Dosage: 2 DOSAGE FORMS DAILY; 1?0?1?0
  10. STALEVO 150MG/37,5MG/200MG [Concomitant]
     Dosage: 150 MILLIGRAM DAILY;  1?0?0?0
     Route: 048
  11. ALDACTONE [Suspect]
     Active Substance: SPIRONOLACTONE
     Dosage: 25 MILLIGRAM DAILY;  0?1?0?0
     Route: 048
  12. MADOPAR DEPOT [Concomitant]
     Active Substance: BENSERAZIDE HYDROCHLORIDE\LEVODOPA
     Dosage: 1 DOSAGE FORMS DAILY; 1?0?0?0
     Route: 048
  13. KALINOR?RETARD P 600MG [Concomitant]
     Dosage: 2 DOSAGE FORMS DAILY; 1?1?0?0
     Route: 048
  14. TORASEMID [Suspect]
     Active Substance: TORSEMIDE
     Dosage: 10 MILLIGRAM DAILY; 1?0?0?0
     Route: 048

REACTIONS (4)
  - Hypotonia [Unknown]
  - Fatigue [Unknown]
  - General physical health deterioration [Unknown]
  - Hypotension [Unknown]
